FAERS Safety Report 10137101 (Version 1)
Quarter: 2014Q2

REPORT INFORMATION
  Report Type: Spontaneous
  Country: US (occurrence: None)
  Receive Date: 20140428
  Receipt Date: 20140428
  Transmission Date: 20141212
  Serious: Yes (Hospitalization, Disabling, Other)
  Sender: FDA-Public Use
  Company Number: None

PATIENT
  Age: 42 Year
  Sex: Female
  Weight: 68.04 kg

DRUGS (1)
  1. CIPRO [Suspect]
     Indication: ERYSIPELOID
     Dosage: 1 PILL, TWICE DAILY

REACTIONS (6)
  - Feeling abnormal [None]
  - Paraesthesia oral [None]
  - Paraesthesia oral [None]
  - Neuropathy peripheral [None]
  - Activities of daily living impaired [None]
  - Pain [None]
